FAERS Safety Report 16314081 (Version 1)
Quarter: 2019Q2

REPORT INFORMATION
  Report Type: Spontaneous
  Country: US (occurrence: US)
  Receive Date: 20190409
  Receipt Date: 20190409
  Transmission Date: 20190711
  Serious: No
  Sender: FDA-Public Use
  Company Number: None

PATIENT
  Age: 71 Year
  Sex: Female

DRUGS (2)
  1. METHOTREXATE 2.5 MG TABLET, [Suspect]
     Active Substance: METHOTREXATE SODIUM
     Indication: RHEUMATOID ARTHRITIS
     Route: 048
     Dates: start: 201506
  2. HUMIRA [Suspect]
     Active Substance: ADALIMUMAB
     Indication: RHEUMATOID ARTHRITIS
     Dosage: ?          OTHER FREQUENCY:EVERY 2 WEEKS;?
     Route: 058
     Dates: start: 201604

REACTIONS (2)
  - Therapy cessation [None]
  - Surgery [None]
